FAERS Safety Report 23586070 (Version 1)
Quarter: 2024Q1

REPORT INFORMATION
  Report Type: Spontaneous
  Country: ES (occurrence: ES)
  Receive Date: 20240301
  Receipt Date: 20240301
  Transmission Date: 20240409
  Serious: Yes (Other)
  Sender: FDA-Public Use
  Company Number: ES-GILEAD-2024-0663822

PATIENT
  Age: 63 Year
  Sex: Female

DRUGS (10)
  1. VIREAD [Suspect]
     Active Substance: TENOFOVIR DISOPROXIL FUMARATE
     Indication: Hepatitis B
     Dosage: UNK
     Route: 065
     Dates: start: 2001, end: 202303
  2. SODIUM PHOSPHATE [Concomitant]
     Active Substance: SODIUM PHOSPHATE
  3. FOLIC ACID [Concomitant]
     Active Substance: FOLIC ACID
  4. KEPPRA [Concomitant]
     Active Substance: LEVETIRACETAM
  5. MIRTAZAPINE [Concomitant]
     Active Substance: MIRTAZAPINE
  6. ACETAMINOPHEN\TRAMADOL [Concomitant]
     Active Substance: ACETAMINOPHEN\TRAMADOL
  7. SODIUM BICARBONATE [Concomitant]
     Active Substance: SODIUM BICARBONATE
  8. POTASSIUM [Concomitant]
     Active Substance: POTASSIUM
  9. HYDROFERRIN [IRON] [Concomitant]
  10. OSVICAL [Concomitant]

REACTIONS (10)
  - Hypophosphataemic osteomalacia [Unknown]
  - Renal tubular dysfunction [Unknown]
  - Spinal compression fracture [Unknown]
  - Osteonecrosis [Unknown]
  - Meningioma [Unknown]
  - Spinal fracture [Unknown]
  - Fanconi syndrome acquired [Unknown]
  - Spinal osteoarthritis [Unknown]
  - Hepatitis D RNA positive [Unknown]
  - Hepatic enzyme increased [Not Recovered/Not Resolved]
